FAERS Safety Report 4349950-5 (Version None)
Quarter: 2004Q2

REPORT INFORMATION
  Report Type: 
  Country: None (occurrence: None)
  Receive Date: 20040428
  Receipt Date: 20040428
  Transmission Date: 20050107
  Serious: Yes (Hospitalization)
  Sender: FDA-Public Use
  Company Number: None

PATIENT
  Age: 71 Year
  Sex: Female
  Weight: 101.6057 kg

DRUGS (2)
  1. INFLIXIMAB 500MG CENTOCOR [Suspect]
     Indication: RHEUMATOID ARTHRITIS
     Dosage: 500MG EVERY 8 WE INTRAVENOUS
     Route: 042
     Dates: start: 20020101, end: 20040220
  2. METHOTREXATE [Concomitant]

REACTIONS (1)
  - CARDIAC FAILURE CONGESTIVE [None]
